FAERS Safety Report 8710258 (Version 2)
Quarter: 2012Q4

REPORT INFORMATION
  Report Type: 
  Country: US (occurrence: US)
  Receive Date: 20120807
  Receipt Date: 20121008
  Transmission Date: 20130627
  Serious: Yes (Death)
  Sender: FDA-Public Use
  Company Number: US-BRISTOL-MYERS SQUIBB COMPANY-16833170

PATIENT
  Age: 82 Year
  Sex: Male

DRUGS (1)
  1. YERVOY [Suspect]
     Indication: MALIGNANT MELANOMA
     Dosage: Doses:4,Inf on 15May12,5Jun12,3Jul12
     Route: 042
     Dates: start: 20120423, end: 20120703

REACTIONS (1)
  - Cerebrovascular accident [Fatal]
